FAERS Safety Report 18979530 (Version 1)
Quarter: 2021Q1

REPORT INFORMATION
  Report Type: Report from Study
  Country: JP (occurrence: JP)
  Receive Date: 20210308
  Receipt Date: 20210308
  Transmission Date: 20210420
  Serious: Yes (Hospitalization, Other)
  Sender: FDA-Public Use
  Company Number: JP-SUN PHARMACEUTICAL INDUSTRIES LTD-2021RR-283650

PATIENT
  Age: 66 Year
  Sex: Female

DRUGS (4)
  1. WARFARIN [Suspect]
     Active Substance: WARFARIN
     Indication: TOOTH EXTRACTION
     Dosage: 4 MILLIGRAM, DAILY
     Route: 065
  2. AMPICILLIN [Suspect]
     Active Substance: AMPICILLIN
     Indication: TOOTH EXTRACTION
     Dosage: 2 GRAM, SINGLE DOSE
     Route: 065
  3. AMOXICILLIN. [Interacting]
     Active Substance: AMOXICILLIN
     Indication: TOOTH EXTRACTION
     Dosage: 750 MILLIGRAM, DAILY
     Route: 065
  4. ACETAMINOPHEN. [Suspect]
     Active Substance: ACETAMINOPHEN
     Indication: ANALGESIC THERAPY
     Dosage: UNK
     Route: 065

REACTIONS (3)
  - Drug interaction [Unknown]
  - Post procedural haemorrhage [Unknown]
  - International normalised ratio increased [Unknown]
